FAERS Safety Report 10200709 (Version 4)
Quarter: 2014Q3

REPORT INFORMATION
  Report Type: Report from Study
  Country: CA (occurrence: CA)
  Receive Date: 20140528
  Receipt Date: 20140813
  Transmission Date: 20150326
  Serious: Yes (Other)
  Sender: FDA-Public Use
  Company Number: CA-BRISTOL-MYERS SQUIBB COMPANY-19428341

PATIENT
  Age: 69 Year
  Sex: Female

DRUGS (5)
  1. MULTIVITAMINS [Concomitant]
     Active Substance: VITAMINS
  2. ORENCIA [Suspect]
     Active Substance: ABATACEPT
     Indication: RHEUMATOID ARTHRITIS
     Dosage: LOT:3H65580EXPIRY-JUL16?LOT:3J75953EXPIRY-JUL16?LOT:3E73716FREQUENCY:2WEEK?LOT:3G75924,EX MAR16.
     Route: 042
     Dates: start: 20130724
  3. HYDROCHLOROTHIAZIDE. [Concomitant]
     Active Substance: HYDROCHLOROTHIAZIDE
  4. ARAVA [Concomitant]
     Active Substance: LEFLUNOMIDE
  5. TIROSINT [Concomitant]
     Active Substance: LEVOTHYROXINE SODIUM

REACTIONS (13)
  - Burning sensation [Unknown]
  - Pain in extremity [Unknown]
  - Cataract [Unknown]
  - Back pain [Unknown]
  - Infection [Unknown]
  - Arthralgia [Unknown]
  - Neck pain [Unknown]
  - Paraesthesia [Unknown]
  - Fatigue [Not Recovered/Not Resolved]
  - Nasal congestion [Not Recovered/Not Resolved]
  - Rhinorrhoea [Recovered/Resolved]
  - Rash erythematous [Recovering/Resolving]
  - Headache [Unknown]

NARRATIVE: CASE EVENT DATE: 2013
